FAERS Safety Report 4509080-6 (Version None)
Quarter: 2004Q4

REPORT INFORMATION
  Report Type: 
  Country: None (occurrence: None)
  Receive Date: 20041025
  Receipt Date: 20040722
  Transmission Date: 20050328
  Serious: Yes (Hospitalization)
  Sender: FDA-Public Use
  Company Number: US-JNJFOC-20040706307

PATIENT
  Age: 23 Year
  Sex: Female
  Weight: 50.8029 kg

DRUGS (5)
  1. INFLIXIMAB (INFLIXIMAB, RECOMBINANT) LYOPHILIZED POWDER [Suspect]
     Indication: CROHN'S DISEASE
     Dosage: 5 MG/KG, INTRAVENOUS
     Route: 042
     Dates: start: 20031124
  2. MERCAPTOPURINE [Concomitant]
  3. ANTIBIOTICS (ANTIBIOTICS) [Concomitant]
  4. ANTISPASMOTICS (ANTISPASMOTICS; ANTICHOLINEGICS) [Concomitant]
  5. PREDNISONE [Concomitant]

REACTIONS (2)
  - INFUSION RELATED REACTION [None]
  - SMALL INTESTINAL OBSTRUCTION [None]
